FAERS Safety Report 16525612 (Version 8)
Quarter: 2020Q1

REPORT INFORMATION
  Report Type: Spontaneous
  Country: US (occurrence: US)
  Receive Date: 20190703
  Receipt Date: 20200303
  Transmission Date: 20200409
  Serious: No
  Sender: FDA-Public Use
  Company Number: US-SA-2019SA177557

PATIENT
  Age: 14 Year
  Sex: Male

DRUGS (2)
  1. DUPIXENT [Suspect]
     Active Substance: DUPILUMAB
     Indication: DERMATITIS ATOPIC
     Dosage: 600 MG, 1X
     Route: 058
     Dates: start: 201905, end: 201905
  2. DUPIXENT [Suspect]
     Active Substance: DUPILUMAB
     Dosage: 300 MG, QOW
     Route: 058
     Dates: start: 2019

REACTIONS (11)
  - Skin discolouration [Unknown]
  - Condition aggravated [Unknown]
  - Influenza [Unknown]
  - Dry skin [Unknown]
  - Oral herpes [Recovered/Resolved]
  - Injection site haemorrhage [Recovered/Resolved]
  - Dermatitis atopic [Unknown]
  - Stomatitis [Unknown]
  - Rash pruritic [Unknown]
  - Dry skin [Unknown]
  - Anxiety [Unknown]

NARRATIVE: CASE EVENT DATE: 2019
